FAERS Safety Report 5529029-7 (Version None)
Quarter: 2007Q4

REPORT INFORMATION
  Report Type: 
  Country: None (occurrence: None)
  Receive Date: 20071119
  Receipt Date: 20071012
  Transmission Date: 20080405
  Serious: No
  Sender: FDA-Public Use
  Company Number: TPA2007A02120

PATIENT
  Age: 57 Year
  Sex: Male
  Weight: 107.5025 kg

DRUGS (2)
  1. ROZEREM [Suspect]
     Indication: INSOMNIA
     Dosage: 8 MG, QHS, PER ORAL
     Route: 048
     Dates: start: 20071008, end: 20071009
  2. ROZEREM [Suspect]
     Indication: MIDDLE INSOMNIA
     Dosage: 8 MG, QHS, PER ORAL
     Route: 048
     Dates: start: 20071008, end: 20071009

REACTIONS (3)
  - DECREASED ACTIVITY [None]
  - HANGOVER [None]
  - MIDDLE INSOMNIA [None]
